FAERS Safety Report 9355471 (Version 1)
Quarter: 2013Q2

REPORT INFORMATION
  Report Type: Spontaneous
  Country: US (occurrence: None)
  Receive Date: 20130618
  Receipt Date: 20130618
  Transmission Date: 20140414
  Serious: Yes (Other)
  Sender: FDA-Public Use
  Company Number: None

PATIENT
  Age: 66 Year
  Sex: Female
  Weight: 73.03 kg

DRUGS (2)
  1. DOXORUBICIN HCI LIPOSOME [Suspect]
     Dosage: EVERY 21 DAYS
     Route: 042
     Dates: start: 20130530, end: 20130530
  2. DOXORUBICIN HCI LIPOSOME [Suspect]

REACTIONS (5)
  - Flushing [None]
  - Dyspnoea [None]
  - Chest discomfort [None]
  - Back pain [None]
  - Infusion related reaction [None]
